FAERS Safety Report 8616306-6 (Version None)
Quarter: 2012Q3

REPORT INFORMATION
  Report Type: 
  Country: None (occurrence: None)
  Receive Date: 20120823
  Receipt Date: 20120821
  Transmission Date: 20120928
  Serious: No
  Sender: FDA-Public Use
  Company Number: US-BAYER-2012-087201

PATIENT
  Age: 58 Year
  Sex: Female

DRUGS (1)
  1. BETASERON [Suspect]
     Indication: MULTIPLE SCLEROSIS
     Dosage: .25 MG, QOD
     Route: 058
     Dates: start: 19960101

REACTIONS (5)
  - TREMOR [None]
  - INFLUENZA LIKE ILLNESS [None]
  - CHILLS [None]
  - FEELING COLD [None]
  - PAIN [None]
